FAERS Safety Report 9817962 (Version 1)
Quarter: 2014Q1

REPORT INFORMATION
  Report Type: Spontaneous
  Country: AU (occurrence: AU)
  Receive Date: 20140115
  Receipt Date: 20140115
  Transmission Date: 20141002
  Serious: Yes (Hospitalization)
  Sender: FDA-Public Use
  Company Number: PHHY2014AU002986

PATIENT
  Age: 51 Year
  Sex: Female

DRUGS (1)
  1. CLOZAPINE [Suspect]
     Dosage: 150 MG TO 500 MG

REACTIONS (6)
  - Mania [Unknown]
  - Sleep disorder [Unknown]
  - Agitation [Unknown]
  - Hostility [Unknown]
  - Tangentiality [Unknown]
  - Pressure of speech [Unknown]
